FAERS Safety Report 8933578 (Version 4)
Quarter: 2014Q4

REPORT INFORMATION
  Report Type: Report from Study
  Country: JP (occurrence: JP)
  Receive Date: 20121129
  Receipt Date: 20141015
  Transmission Date: 20150529
  Serious: Yes (Death, Hospitalization)
  Sender: FDA-Public Use
  Company Number: JP-JNJFOC-20121114504

PATIENT
  Age: 69 Year
  Sex: Male
  Weight: 46 kg

DRUGS (16)
  1. STELARA [Suspect]
     Active Substance: USTEKINUMAB
     Indication: PSORIATIC ARTHROPATHY
     Route: 058
     Dates: start: 20120518
  2. STELARA [Suspect]
     Active Substance: USTEKINUMAB
     Indication: PSORIATIC ARTHROPATHY
     Route: 058
     Dates: start: 20120810, end: 20121119
  3. HYDROCHLOROTHIAZIDE\VALSARTAN [Concomitant]
     Active Substance: HYDROCHLOROTHIAZIDE\VALSARTAN
     Route: 048
     Dates: end: 20121116
  4. STELARA [Suspect]
     Active Substance: USTEKINUMAB
     Indication: PSORIATIC ARTHROPATHY
     Route: 058
     Dates: start: 20111111
  5. PREDONINE [Concomitant]
     Active Substance: PREDNISOLONE\PREDNISOLONE ACETATE\PREDNISOLONE SODIUM SUCCINATE
     Indication: PSORIATIC ARTHROPATHY
     Route: 048
     Dates: start: 20120309, end: 20120331
  6. PARIET [Concomitant]
     Active Substance: RABEPRAZOLE SODIUM
     Route: 048
  7. PREDONINE [Concomitant]
     Active Substance: PREDNISOLONE\PREDNISOLONE ACETATE\PREDNISOLONE SODIUM SUCCINATE
     Indication: PSORIATIC ARTHROPATHY
     Route: 048
     Dates: start: 20120210, end: 20120308
  8. PREDONINE [Concomitant]
     Active Substance: PREDNISOLONE\PREDNISOLONE ACETATE\PREDNISOLONE SODIUM SUCCINATE
     Indication: PSORIATIC ARTHROPATHY
     Route: 048
     Dates: start: 20121124, end: 20121214
  9. PREDONINE [Concomitant]
     Active Substance: PREDNISOLONE\PREDNISOLONE ACETATE\PREDNISOLONE SODIUM SUCCINATE
     Indication: PSORIATIC ARTHROPATHY
     Route: 048
     Dates: start: 20120119, end: 20120209
  10. PREDONINE [Concomitant]
     Active Substance: PREDNISOLONE\PREDNISOLONE ACETATE\PREDNISOLONE SODIUM SUCCINATE
     Indication: PSORIATIC ARTHROPATHY
     Route: 048
     Dates: start: 20120401, end: 20120524
  11. PREDONINE [Concomitant]
     Active Substance: PREDNISOLONE\PREDNISOLONE ACETATE\PREDNISOLONE SODIUM SUCCINATE
     Indication: PSORIATIC ARTHROPATHY
     Route: 048
     Dates: start: 20120525, end: 20120906
  12. ALLELOCK [Concomitant]
     Active Substance: OLOPATADINE HYDROCHLORIDE
     Indication: PSORIATIC ARTHROPATHY
     Route: 048
     Dates: end: 20121116
  13. NORVASC [Concomitant]
     Active Substance: AMLODIPINE BESYLATE
     Route: 048
     Dates: end: 20121116
  14. STELARA [Suspect]
     Active Substance: USTEKINUMAB
     Indication: PSORIATIC ARTHROPATHY
     Route: 058
     Dates: start: 20120420
  15. PREDONINE [Concomitant]
     Active Substance: PREDNISOLONE\PREDNISOLONE ACETATE\PREDNISOLONE SODIUM SUCCINATE
     Indication: PSORIATIC ARTHROPATHY
     Route: 048
     Dates: start: 20120907, end: 20121120
  16. STELARA [Suspect]
     Active Substance: USTEKINUMAB
     Indication: PSORIATIC ARTHROPATHY
     Route: 058
     Dates: start: 20111209

REACTIONS (5)
  - Wound infection [Recovered/Resolved]
  - Multi-organ failure [Fatal]
  - Renal disorder [Fatal]
  - Injury [Recovering/Resolving]
  - Blister [Not Recovered/Not Resolved]

NARRATIVE: CASE EVENT DATE: 20120812
